FAERS Safety Report 4718261-8 (Version None)
Quarter: 2005Q3

REPORT INFORMATION
  Report Type: 
  Country: None (occurrence: None)
  Receive Date: 20050714
  Receipt Date: 20041104
  Transmission Date: 20060218
  Serious: Yes (Life-Threatening)
  Sender: FDA-Public Use
  Company Number: HQWYE259105NOV04

PATIENT
  Age: 48 Year
  Sex: Female
  Weight: 86.26 kg

DRUGS (1)
  1. ADVIL [Suspect]
     Indication: HEADACHE
     Dosage: 2 GEL CAPS, ORAL
     Route: 048

REACTIONS (1)
  - ANAPHYLACTIC REACTION [None]
